FAERS Safety Report 17245585 (Version 1)
Quarter: 2020Q1

REPORT INFORMATION
  Report Type: Spontaneous
  Country: US (occurrence: US)
  Receive Date: 20200108
  Receipt Date: 20200108
  Transmission Date: 20200409
  Serious: No
  Sender: FDA-Public Use
  Company Number: US-JNJFOC-20191242947

PATIENT
  Age: 8 Year
  Sex: Female
  Weight: 20.43 kg

DRUGS (1)
  1. CHILDRENS TYLENOL DISSOLVE PACKS, WILD BERRY FLAVOR [Suspect]
     Active Substance: ACETAMINOPHEN
     Indication: PYREXIA
     Dosage: 1 PACKET YESTERDAY AND 2 PACKET YESTERDAY AT BEDTIME, BY MOUTH
     Route: 048
     Dates: start: 20191222

REACTIONS (4)
  - Rash pruritic [Recovered/Resolved]
  - Urticaria [Recovered/Resolved]
  - Incorrect dose administered [Unknown]
  - Rash [Not Recovered/Not Resolved]

NARRATIVE: CASE EVENT DATE: 20191222
